FAERS Safety Report 4625231-7 (Version None)
Quarter: 2005Q2

REPORT INFORMATION
  Report Type: 
  Country: None (occurrence: None)
  Receive Date: 20050401
  Receipt Date: 20050310
  Transmission Date: 20051028
  Serious: Yes (Hospitalization)
  Sender: FDA-Public Use
  Company Number: US-ROCHE-398305

PATIENT
  Age: 32 Year
  Sex: Female
  Weight: 76.7 kg

DRUGS (6)
  1. PEGASYS [Suspect]
     Route: 058
     Dates: start: 20050122, end: 20050225
  2. RIBAVIRIN [Interacting]
     Dosage: AM AND PM.
     Route: 048
     Dates: start: 20050122, end: 20050225
  3. DEPAKOTE [Interacting]
     Indication: BIPOLAR DISORDER
     Dosage: DAILY DOSING.
     Route: 048
     Dates: end: 20050225
  4. DEPAKOTE [Interacting]
     Route: 048
     Dates: start: 20050304, end: 20050311
  5. METHADONE HCL [Concomitant]
     Route: 048
  6. ZOLOFT [Concomitant]
     Indication: BIPOLAR DISORDER
     Route: 048

REACTIONS (3)
  - ANAEMIA [None]
  - DRUG INTERACTION [None]
  - PANCYTOPENIA [None]
